FAERS Safety Report 5532861-7 (Version None)
Quarter: 2007Q4

REPORT INFORMATION
  Report Type: 
  Country: None (occurrence: None)
  Receive Date: 20071129
  Receipt Date: 20071113
  Transmission Date: 20080405
  Serious: Yes (Hospitalization)
  Sender: FDA-Public Use
  Company Number: WAES 0711USA03982

PATIENT
  Age: 63 Year
  Sex: Female

DRUGS (6)
  1. PRINIVIL [Suspect]
     Indication: HYPERTENSION
     Dosage: 20 MG/DAILY/PO
     Route: 048
     Dates: start: 20070926, end: 20071031
  2. ACTOS [Suspect]
     Indication: DIABETES MELLITUS
     Dosage: 15 MG/DAILY/PO
     Route: 048
     Dates: start: 20071031, end: 20071031
  3. ZOCOR [Concomitant]
  4. GLIPIZIDE [Concomitant]
  5. METFORMIN HYDROCHLORIDE [Concomitant]
  6. METOPROLOL TARTRATE [Concomitant]

REACTIONS (4)
  - HYPERHIDROSIS [None]
  - LETHARGY [None]
  - LISTLESS [None]
  - NAUSEA [None]
